FAERS Safety Report 7005479-7 (Version None)
Quarter: 2010Q3

REPORT INFORMATION
  Report Type: 
  Country: None (occurrence: None)
  Receive Date: 20100921
  Receipt Date: 20100909
  Transmission Date: 20110219
  Serious: Yes (Other)
  Sender: FDA-Public Use
  Company Number: US-ROCHE-727990

PATIENT
  Sex: Male

DRUGS (1)
  1. CYTOVENE IV [Suspect]
     Indication: PRODUCT USED FOR UNKNOWN INDICATION
     Dosage: FORM: INFUSION
     Route: 042

REACTIONS (1)
  - COMPLICATIONS OF TRANSPLANTED KIDNEY [None]
